FAERS Safety Report 24958738 (Version 1)
Quarter: 2025Q1

REPORT INFORMATION
  Report Type: Spontaneous
  Country: CA (occurrence: CA)
  Receive Date: 20250212
  Receipt Date: 20250212
  Transmission Date: 20250409
  Serious: Yes (Hospitalization)
  Sender: CSL BEHRING
  Company Number: CA-BEH-2025194673

PATIENT
  Age: 2 Year
  Sex: Male

DRUGS (5)
  1. HUMAN IMMUNOGLOBULIN G [Suspect]
     Active Substance: HUMAN IMMUNOGLOBULIN G
     Indication: Primary immunodeficiency syndrome
     Dosage: 2 G, QW SOLUTION FOR INFUSION
     Route: 065
  2. HUMAN IMMUNOGLOBULIN G [Suspect]
     Active Substance: HUMAN IMMUNOGLOBULIN G
     Dosage: 1.6 G, QW
     Route: 065
  3. ISONIAZID [Concomitant]
     Active Substance: ISONIAZID
  4. RIFAMPIN [Concomitant]
     Active Substance: RIFAMPIN
  5. SULFAMETHOXAZOLE [Concomitant]
     Active Substance: SULFAMETHOXAZOLE

REACTIONS (2)
  - Bone marrow transplant [Not Recovered/Not Resolved]
  - Condition aggravated [Not Recovered/Not Resolved]
